FAERS Safety Report 16509971 (Version 1)
Quarter: 2019Q3

REPORT INFORMATION
  Report Type: Spontaneous
  Country: CA (occurrence: CA)
  Receive Date: 20190702
  Receipt Date: 20190702
  Transmission Date: 20191004
  Serious: Yes (Other)
  Sender: FDA-Public Use
  Company Number: CA-AUROBINDO-AUR-APL-2019-036682

PATIENT

DRUGS (4)
  1. LEVETIRACETAM TABLET [Suspect]
     Active Substance: LEVETIRACETAM
     Indication: MUSCLE TWITCHING
  2. LEVETIRACETAM TABLET [Suspect]
     Active Substance: LEVETIRACETAM
     Indication: MYOCLONUS
     Dosage: 1250 MILLIGRAM, TWO TIMES A DAY
     Route: 048
  3. LAMOTRIGINE TABLET [Suspect]
     Active Substance: LAMOTRIGINE
     Indication: MYOCLONUS
     Dosage: 150 MILLIGRAM, TWO TIMES A DAY
     Route: 048
  4. LAMOTRIGINE TABLET [Suspect]
     Active Substance: LAMOTRIGINE
     Indication: MUSCLE TWITCHING

REACTIONS (1)
  - Seizure [Recovered/Resolved]
